FAERS Safety Report 6179348-9 (Version None)
Quarter: 2009Q2

REPORT INFORMATION
  Report Type: 
  Country: None (occurrence: None)
  Receive Date: 20090501
  Receipt Date: 20090501
  Transmission Date: 20091009
  Serious: Yes (Other)
  Sender: FDA-Public Use
  Company Number: None

PATIENT
  Age: 68 Year
  Sex: Male
  Weight: 53 kg

DRUGS (2)
  1. CARBOPLATIN [Suspect]
     Indication: NON-SMALL CELL LUNG CANCER STAGE I
     Dosage: AUC=6 MG/ML X MIN 4, 3-WEEK CYCLES IV DRIP
     Route: 041
     Dates: start: 20021028, end: 20021230
  2. TAXOL [Suspect]
     Indication: NON-SMALL CELL LUNG CANCER STAGE I
     Dosage: 200 MG/M2 4, 3-WEEK CYCLES IV DRIP
     Route: 041
     Dates: start: 20021028, end: 20021230

REACTIONS (2)
  - TRANSITIONAL CELL CARCINOMA [None]
  - TUMOUR INVASION [None]
